FAERS Safety Report 8828212 (Version 1)
Quarter: 2012Q4

REPORT INFORMATION
  Report Type: 
  Country: BR (occurrence: BR)
  Receive Date: 20121005
  Receipt Date: 20121005
  Transmission Date: 20130627
  Serious: Yes (Other)
  Sender: FDA-Public Use
  Company Number: BR-AMGEN-BRASP2012003993

PATIENT
  Age: 45 Year
  Sex: Female
  Weight: 82 kg

DRUGS (4)
  1. ENBREL [Suspect]
     Indication: RHEUMATOID ARTHRITIS
     Dosage: 50 mg, 1x/week
     Route: 058
     Dates: start: 201110, end: 201204
  2. DICLOFENAC [Concomitant]
     Dosage: UNK
  3. PREDNISONE [Concomitant]
     Dosage: UNK
  4. METHOTREXATE [Concomitant]
     Dosage: UNK

REACTIONS (5)
  - Pain in extremity [Unknown]
  - Oedema peripheral [Unknown]
  - Asthenia [Unknown]
  - Drug ineffective [Unknown]
  - Rheumatoid arthritis [Unknown]
